FAERS Safety Report 7211726-9 (Version None)
Quarter: 2011Q1

REPORT INFORMATION
  Report Type: 
  Country: None (occurrence: None)
  Receive Date: 20110105
  Receipt Date: 20110105
  Transmission Date: 20110831
  Serious: Yes (Other)
  Sender: FDA-Public Use
  Company Number: CN-PFIZER INC-2010180740

PATIENT
  Age: 40 Year
  Sex: Male

DRUGS (1)
  1. VFEND [Suspect]
     Indication: LUNG INFECTION
     Route: 041

REACTIONS (3)
  - PLEURAL EFFUSION [None]
  - GENERALISED OEDEMA [None]
  - BLOOD ALBUMIN DECREASED [None]
